FAERS Safety Report 6723598-7 (Version None)
Quarter: 2010Q2

REPORT INFORMATION
  Report Type: 
  Country: None (occurrence: None)
  Receive Date: 20100513
  Receipt Date: 20100504
  Transmission Date: 20101027
  Serious: Yes (Other)
  Sender: FDA-Public Use
  Company Number: NL-NOVOPROD-308317

PATIENT
  Sex: Male
  Weight: 3.56 kg

DRUGS (4)
  1. LEVEMIR [Suspect]
     Indication: TYPE 2 DIABETES MELLITUS
     Dosage: 52 IU DURING PREGNANCY
     Route: 064
     Dates: start: 20090911
  2. LEVEMIR [Suspect]
     Dosage: 38 IU, QD AFTER PREGNANCY
     Dates: start: 20090911
  3. NOVORAPID PENFILL [Suspect]
     Indication: TYPE 2 DIABETES MELLITUS
     Dosage: 118 IU DURING PREGNANCY
     Route: 064
     Dates: start: 20090911
  4. NOVORAPID PENFILL [Suspect]
     Dosage: 61 IU, QD AFTER PREGNANCY
     Dates: start: 20090911

REACTIONS (2)
  - DRUG EXPOSURE DURING PREGNANCY [None]
  - PREMATURE BABY [None]
